FAERS Safety Report 17450521 (Version 1)
Quarter: 2020Q1

REPORT INFORMATION
  Report Type: Spontaneous
  Country: US (occurrence: US)
  Receive Date: 20200224
  Receipt Date: 20200224
  Transmission Date: 20200409
  Serious: No
  Sender: FDA-Public Use
  Company Number: US-BAYER-2020-032135

PATIENT
  Age: 88 Year
  Sex: Male

DRUGS (2)
  1. MIRALAX [Suspect]
     Active Substance: POLYETHYLENE GLYCOL 3350
     Dosage: LABEL DIRECTIONS
     Route: 048
     Dates: start: 20200120, end: 20200220
  2. VITAMINS NOS [Concomitant]
     Active Substance: VITAMINS

REACTIONS (3)
  - Cough [None]
  - Abdominal discomfort [None]
  - Constipation [None]

NARRATIVE: CASE EVENT DATE: 2020
